FAERS Safety Report 14314717 (Version 1)
Quarter: 2017Q4

REPORT INFORMATION
  Report Type: Spontaneous
  Country: US (occurrence: US)
  Receive Date: 20171221
  Receipt Date: 20171221
  Transmission Date: 20180321
  Serious: Yes (Other)
  Sender: FDA-Public Use
  Company Number: US-PFIZER INC-2017539181

PATIENT
  Age: 58 Year
  Sex: Female

DRUGS (3)
  1. VINCRISTINE SULFATE. [Suspect]
     Active Substance: VINCRISTINE SULFATE
     Indication: SQUAMOUS CELL CARCINOMA OF THE CERVIX
     Dosage: UNK, CYCLIC (3 CYCLES)
  2. BLEOMYCIN SULFATE [Suspect]
     Active Substance: BLEOMYCIN SULFATE
     Indication: SQUAMOUS CELL CARCINOMA OF THE CERVIX
     Dosage: UNK, CYCLIC (3 CYCLES)
  3. CISPLATIN. [Suspect]
     Active Substance: CISPLATIN
     Indication: SQUAMOUS CELL CARCINOMA OF THE CERVIX
     Dosage: UNK, CYCLIC (3 CYCLES)

REACTIONS (1)
  - Haemolytic uraemic syndrome [Recovering/Resolving]
